FAERS Safety Report 9782619 (Version 1)
Quarter: 2013Q4

REPORT INFORMATION
  Report Type: Report from Study
  Country: CA (occurrence: CA)
  Receive Date: 20131226
  Receipt Date: 20131226
  Transmission Date: 20140711
  Serious: Yes (Other)
  Sender: FDA-Public Use
  Company Number: CA-ROCHE-1321870

PATIENT
  Sex: Female
  Weight: 54.4 kg

DRUGS (7)
  1. PERJETA [Suspect]
     Indication: BREAST CANCER METASTATIC
     Route: 042
     Dates: start: 20130919, end: 20131112
  2. HERCEPTIN [Suspect]
     Indication: BREAST CANCER
     Route: 042
     Dates: start: 201110, end: 201310
  3. XELODA [Suspect]
     Indication: BREAST CANCER
     Route: 048
     Dates: start: 2012, end: 2013
  4. TAXOTERE [Concomitant]
     Route: 065
     Dates: start: 201308, end: 201310
  5. DEXAMETHASONE [Concomitant]
     Route: 065
     Dates: start: 2012
  6. SYNTHROID [Concomitant]
     Dosage: START DATE WAS YEARS AGO NOS
     Route: 065
  7. POLYSPORIN OINTMENT (CANADA) [Concomitant]
     Indication: DRY EYE

REACTIONS (3)
  - Malignant neoplasm progression [Unknown]
  - Hypothyroidism [Unknown]
  - Drug effect decreased [Unknown]
